FAERS Safety Report 8621720-9 (Version None)
Quarter: 2012Q3

REPORT INFORMATION
  Report Type: 
  Country: None (occurrence: None)
  Receive Date: 20120821
  Receipt Date: 20120821
  Transmission Date: 20120928
  Serious: No
  Sender: FDA-Public Use
  Company Number: None

PATIENT
  Sex: Female
  Weight: 74.1 kg

DRUGS (4)
  1. CISPLATIN [Suspect]
  2. DEXAMETHASONE [Concomitant]
  3. ATIVAN [Concomitant]
  4. COMPAZINE [Concomitant]

REACTIONS (1)
  - LYMPHOCYTE COUNT DECREASED [None]
